FAERS Safety Report 6161039-1 (Version None)
Quarter: 2009Q2

REPORT INFORMATION
  Report Type: 
  Country: None (occurrence: None)
  Receive Date: 20090420
  Receipt Date: 20090407
  Transmission Date: 20091009
  Serious: Yes (Other)
  Sender: FDA-Public Use
  Company Number: GB-PFIZER INC-2009194240

PATIENT

DRUGS (9)
  1. CHAMPIX [Suspect]
     Dosage: 1 MG, 2X/DAY
     Route: 048
     Dates: start: 20090108, end: 20090225
  2. ACETYLSALICYLIC ACID [Concomitant]
     Dosage: 75 MG, 1X/DAY
     Route: 048
     Dates: start: 20060331
  3. GAVISCON [Concomitant]
     Dosage: 10 ML, 4X/DAY
     Route: 048
     Dates: start: 20090309
  4. OMEPRAZOLE [Concomitant]
     Dosage: 20 MG, 1X/DAY
     Route: 048
     Dates: start: 20090309
  5. PARACETAMOL [Concomitant]
     Dosage: 1000 MG, 4X/DAY
     Route: 048
     Dates: start: 20080903
  6. ROSUVASTATIN [Concomitant]
     Dosage: 10 MG, 1X/DAY
     Route: 048
     Dates: start: 20060331
  7. THIAMINE HYDROCHLORIDE [Concomitant]
     Dosage: 100 MG, 1X/DAY
     Route: 048
     Dates: start: 20071109
  8. TRAMADOL [Concomitant]
     Dosage: 50 MG, 2X/DAY
     Route: 048
     Dates: start: 20080906
  9. VITAMIN B COMPLEX CAP [Concomitant]
     Dosage: UNK
     Route: 048
     Dates: start: 20060331

REACTIONS (6)
  - BALANCE DISORDER [None]
  - DYSPEPSIA [None]
  - GASTROOESOPHAGEAL REFLUX DISEASE [None]
  - NASAL DISCOMFORT [None]
  - TINNITUS [None]
  - VOMITING [None]
